FAERS Safety Report 10775697 (Version 1)
Quarter: 2015Q1

REPORT INFORMATION
  Report Type: Spontaneous
  Country: US (occurrence: None)
  Receive Date: 20150206
  Receipt Date: 20150206
  Transmission Date: 20150721
  Serious: Yes (Life-Threatening, Hospitalization)
  Sender: FDA-Public Use
  Company Number: None

PATIENT
  Age: 70 Year
  Sex: Female
  Weight: 74.84 kg

DRUGS (4)
  1. TORADOL [Suspect]
     Active Substance: KETOROLAC TROMETHAMINE
     Indication: PAIN
     Dosage: 1 INJECTION IN HIP AS REQUIRED
     Dates: start: 20141230, end: 20150102
  2. CRANBERRY PILLS [Concomitant]
  3. TORADOL [Suspect]
     Active Substance: KETOROLAC TROMETHAMINE
     Indication: BACK PAIN
     Dosage: 1 INJECTION IN HIP AS REQUIRED
     Dates: start: 20141230, end: 20150102
  4. TORADOL [Suspect]
     Active Substance: KETOROLAC TROMETHAMINE
     Indication: CYSTITIS
     Dosage: 1 INJECTION IN HIP AS REQUIRED
     Dates: start: 20141230, end: 20150102

REACTIONS (9)
  - Oedema [None]
  - Pruritus [None]
  - Nausea [None]
  - Dyspnoea [None]
  - Feeling hot [None]
  - Unevaluable event [None]
  - Fatigue [None]
  - Rash erythematous [None]
  - Anxiety [None]

NARRATIVE: CASE EVENT DATE: 20150103
